FAERS Safety Report 11977409 (Version 2)
Quarter: 2016Q1

REPORT INFORMATION
  Report Type: Spontaneous
  Country: CN (occurrence: CN)
  Receive Date: 20160129
  Receipt Date: 20160325
  Transmission Date: 20160526
  Serious: Yes (Hospitalization, Other)
  Sender: FDA-Public Use
  Company Number: CN-ASTRAZENECA-2016SE07968

PATIENT
  Age: 62 Year
  Sex: Male

DRUGS (7)
  1. NEXIUM [Suspect]
     Active Substance: ESOMEPRAZOLE MAGNESIUM
     Indication: REGURGITATION
     Route: 048
     Dates: start: 201512
  2. NEXIUM [Suspect]
     Active Substance: ESOMEPRAZOLE MAGNESIUM
     Indication: GASTROOESOPHAGEAL REFLUX DISEASE
     Route: 048
     Dates: start: 201512
  3. NEXIUM [Suspect]
     Active Substance: ESOMEPRAZOLE MAGNESIUM
     Indication: GASTROOESOPHAGEAL REFLUX DISEASE
     Route: 048
     Dates: start: 201601
  4. NEXIUM [Suspect]
     Active Substance: ESOMEPRAZOLE MAGNESIUM
     Indication: REGURGITATION
     Route: 048
     Dates: start: 201601
  5. HYDROTALCITE [Concomitant]
     Active Substance: HYDROTALCITE
  6. NEXIUM [Suspect]
     Active Substance: ESOMEPRAZOLE MAGNESIUM
     Indication: GASTROOESOPHAGEAL REFLUX DISEASE
     Route: 048
     Dates: start: 201410
  7. NEXIUM [Suspect]
     Active Substance: ESOMEPRAZOLE MAGNESIUM
     Indication: REGURGITATION
     Route: 048
     Dates: start: 201410

REACTIONS (9)
  - Intestinal mass [Unknown]
  - Gastrointestinal carcinoma [Unknown]
  - Melaena [Recovered/Resolved]
  - Gastrooesophageal reflux disease [Recovered/Resolved]
  - Dysgeusia [Recovered/Resolved]
  - Colitis ulcerative [Unknown]
  - Intentional product misuse [Unknown]
  - Ileus [Unknown]
  - Constipation [Recovered/Resolved]

NARRATIVE: CASE EVENT DATE: 201504
